FAERS Safety Report 18798708 (Version 1)
Quarter: 2021Q1

REPORT INFORMATION
  Report Type: Spontaneous
  Country: US (occurrence: US)
  Receive Date: 20210127
  Receipt Date: 20210127
  Transmission Date: 20210419
  Serious: Yes (Life-Threatening, Other)
  Sender: FDA-Public Use
  Company Number: None

PATIENT
  Age: 75 Year
  Sex: Male
  Weight: 95.71 kg

DRUGS (1)
  1. BAMLANIVIMAB 700/ELILLY/WAYNE HOSPITAL [Suspect]
     Active Substance: BAMLANIVIMAB
     Indication: SARS-COV-2 TEST POSITIVE
     Route: 042
     Dates: start: 20210119, end: 20210119

REACTIONS (2)
  - Cerebral infarction [None]
  - Cerebrovascular accident [None]

NARRATIVE: CASE EVENT DATE: 20210120
